FAERS Safety Report 11507921 (Version 1)
Quarter: 2015Q3

REPORT INFORMATION
  Report Type: Spontaneous
  Country: US (occurrence: US)
  Receive Date: 20150903
  Receipt Date: 20150903
  Transmission Date: 20151125
  Serious: No
  Sender: FDA-Public Use
  Company Number: US-ELI_LILLY_AND_COMPANY-US200910001589

PATIENT
  Sex: Male

DRUGS (2)
  1. HUMALOG [Suspect]
     Active Substance: INSULIN LISPRO
     Route: 058
  2. HUMALOG [Suspect]
     Active Substance: INSULIN LISPRO
     Route: 058

REACTIONS (11)
  - Nausea [Unknown]
  - Blood glucose increased [Unknown]
  - Feeling abnormal [Unknown]
  - Drug ineffective [Unknown]
  - Malaise [Unknown]
  - Fatigue [Unknown]
  - Agitation [Unknown]
  - Crying [Unknown]
  - Anxiety [Unknown]
  - Tension [Unknown]
  - Asthenia [Unknown]

NARRATIVE: CASE EVENT DATE: 20090909
